FAERS Safety Report 8316108-4 (Version None)
Quarter: 2012Q2

REPORT INFORMATION
  Report Type: 
  Country: None (occurrence: None)
  Receive Date: 20120427
  Receipt Date: 20120423
  Transmission Date: 20120825
  Serious: Yes (Other)
  Sender: FDA-Public Use
  Company Number: US-SP-2011-10823

PATIENT
  Sex: Female

DRUGS (4)
  1. ADACEL [Suspect]
     Indication: IMMUNISATION
     Route: 030
     Dates: start: 20070828, end: 20070828
  2. TUBERSOL [Suspect]
     Indication: TUBERCULIN TEST
     Route: 023
     Dates: start: 20070828, end: 20070828
  3. ADVAIR DISKUS 100/50 [Concomitant]
     Indication: ASTHMA
  4. ZYRTEC [Concomitant]
     Indication: RHINITIS ALLERGIC

REACTIONS (5)
  - VACCINATION FAILURE [None]
  - FATIGUE [None]
  - COUGH [None]
  - PERTUSSIS [None]
  - NASAL CONGESTION [None]
